FAERS Safety Report 8462501-9 (Version None)
Quarter: 2012Q2

REPORT INFORMATION
  Report Type: 
  Country: None (occurrence: None)
  Receive Date: 20120625
  Receipt Date: 20120622
  Transmission Date: 20120825
  Serious: Yes (Hospitalization)
  Sender: FDA-Public Use
  Company Number: PHEH2012US011259

PATIENT
  Sex: Female

DRUGS (2)
  1. GILENYA [Suspect]
     Indication: MULTIPLE SCLEROSIS
     Dosage: 0.5 MG, QD
     Route: 048
     Dates: start: 20110901
  2. ANTIBIOTICS [Suspect]
     Indication: PNEUMONIA

REACTIONS (3)
  - RASH [None]
  - PNEUMONIA [None]
  - HYPOAESTHESIA [None]
